FAERS Safety Report 14558971 (Version 1)
Quarter: 2018Q1

REPORT INFORMATION
  Report Type: Spontaneous
  Country: US (occurrence: US)
  Receive Date: 20180221
  Receipt Date: 20180221
  Transmission Date: 20180509
  Serious: No
  Sender: FDA-Public Use
  Company Number: US-TEVA-2018-US-853750

PATIENT
  Sex: Female
  Weight: 71.67 kg

DRUGS (6)
  1. TIZANIDINE. [Concomitant]
     Active Substance: TIZANIDINE
     Indication: MUSCLE RELAXANT THERAPY
     Dosage: ONE AND ONE HALF 4MG EVERY 6 HOURS
     Dates: start: 2000
  2. LEVETIRACETAM. [Concomitant]
     Active Substance: LEVETIRACETAM
     Indication: SEIZURE
     Dosage: 30 ML DAILY; 100 MG/ML SOLUTION
     Dates: start: 2000
  3. GABAPENTIN. [Suspect]
     Active Substance: GABAPENTIN
     Indication: GLOSSOPHARYNGEAL NEURALGIA
     Dosage: 1200 MILLIGRAM DAILY;
     Route: 065
     Dates: start: 201711
  4. PREVACID [Concomitant]
     Active Substance: LANSOPRAZOLE
     Indication: GASTROOESOPHAGEAL REFLUX DISEASE
     Dosage: 600 MILLIGRAM DAILY;
     Dates: start: 201708
  5. GABAPENTIN. [Suspect]
     Active Substance: GABAPENTIN
     Dosage: CHANGED TO ONE HALF 600MG TABLET FOUR TIMES DAILY
     Route: 065
  6. BACLOFEN. [Concomitant]
     Active Substance: BACLOFEN
     Indication: MUSCLE RELAXANT THERAPY
     Dosage: 800 MILLIGRAM DAILY;
     Dates: start: 2000

REACTIONS (2)
  - Drug ineffective [Unknown]
  - Off label use [Unknown]
